FAERS Safety Report 24188946 (Version 1)
Quarter: 2024Q3

REPORT INFORMATION
  Report Type: Spontaneous
  Country: US (occurrence: US)
  Receive Date: 20240808
  Receipt Date: 20240808
  Transmission Date: 20241017
  Serious: No
  Sender: OTSUKA
  Company Number: US-OTSUKA-2024_016183

PATIENT
  Sex: Female
  Weight: 65.77 kg

DRUGS (2)
  1. ABILIFY [Suspect]
     Active Substance: ARIPIPRAZOLE
     Indication: Cerebral palsy
     Dosage: 10 MG, QD (IN THE MORNING)
     Route: 065
  2. ABILIFY [Suspect]
     Active Substance: ARIPIPRAZOLE
     Dosage: 5 MG, QD (CUT HER 10MG INTO 5MG) (AT NIGHT)
     Route: 065

REACTIONS (8)
  - Abnormal behaviour [Unknown]
  - Malaise [Unknown]
  - Anxiety [Unknown]
  - Wrong technique in product usage process [Unknown]
  - Product use in unapproved indication [Unknown]
  - Product dose omission issue [Unknown]
  - Product availability issue [Unknown]
  - Inappropriate schedule of product administration [Unknown]
